FAERS Safety Report 9303825 (Version 2)
Quarter: 2013Q3

REPORT INFORMATION
  Report Type: Spontaneous
  Country: IN (occurrence: IN)
  Receive Date: 20130522
  Receipt Date: 20130709
  Transmission Date: 20140515
  Serious: Yes (Other)
  Sender: FDA-Public Use
  Company Number: IN-GLAXOSMITHKLINE-B0893346A

PATIENT
  Sex: 0

DRUGS (1)
  1. VOTRIENT [Suspect]
     Indication: SARCOMA
     Dosage: 800MG PER DAY
     Route: 065

REACTIONS (3)
  - Deep vein thrombosis [Unknown]
  - Pulmonary embolism [Unknown]
  - Off label use [Unknown]
